FAERS Safety Report 15855139 (Version 1)
Quarter: 2019Q1

REPORT INFORMATION
  Report Type: Spontaneous
  Country: AU (occurrence: AU)
  Receive Date: 20190122
  Receipt Date: 20190122
  Transmission Date: 20190417
  Serious: Yes (Death, Other)
  Sender: FDA-Public Use
  Company Number: AU-MYLANLABS-2019M1006209

PATIENT
  Sex: Female
  Weight: 54 kg

DRUGS (24)
  1. COLOXYL WITH SENNA [Concomitant]
     Active Substance: DOCUSATE\SENNOSIDES
     Dosage: 2 DOSAGE FORM, QD (PRN)
  2. MOVICOL [Concomitant]
     Active Substance: POLYETHYLENE GLYCOL 3350\POTASSIUM CHLORIDE\SODIUM BICARBONATE\SODIUM CHLORIDE
     Dosage: 1-2 SACHETS TWICE A DAY PRN
  3. DESVENLAFAXINE. [Concomitant]
     Active Substance: DESVENLAFAXINE
     Dosage: 1 DOSAGE FORM, QD
  4. ENDONE [Concomitant]
     Active Substance: OXYCODONE HYDROCHLORIDE
     Dosage: 1 DOSAGE FORM, QID PRN
  5. MIDAZOLAM [Concomitant]
     Active Substance: MIDAZOLAM HYDROCHLORIDE
     Dosage: 2.5 MG PRN WITH MINIMUM DOSE INTERVAL EQUALS TO 30 MINS
  6. ATROPINE. [Concomitant]
     Active Substance: ATROPINE
     Dosage: 600 MICROGRAM, EVERY 6 HOURS PRN
  7. BLACKMORES CRANBERRY [Concomitant]
     Dosage: 1 DOSAGE FORM, QD
  8. FERROGRAD C [Concomitant]
     Active Substance: ASCORBIC ACID\FERROUS SULFATE
     Dosage: 1 DOSAGE FORM, QD
  9. MAXOLON [Concomitant]
     Active Substance: METOCLOPRAMIDE HYDROCHLORIDE
     Dosage: 1 INJECTION FOUR TIMES A DAY PRN
     Route: 030
  10. OROXINE [Concomitant]
     Active Substance: LEVOTHYROXINE SODIUM
     Dosage: 1 DOSAGE FORM, QD
  11. CHOLECALCIFEROL [Concomitant]
     Active Substance: CHOLECALCIFEROL
     Dosage: 1 DOSAGE FORM, QD
  12. RIVOTRIL [Concomitant]
     Active Substance: CLONAZEPAM
     Dosage: 3-5 DROPS EVERY FOUR HOURS PRN
  13. CARBOMER [Concomitant]
     Active Substance: CARBOMER
     Dosage: 2 DROPS DAILY PRN
  14. DENPAX [Concomitant]
     Active Substance: FENTANYL
  15. HPMC PAA [Concomitant]
     Dosage: 1 DROP THREE TIMES A DAY BOTH SIDES
  16. CLOPINE [Suspect]
     Active Substance: CLOZAPINE
     Indication: SCHIZOPHRENIA
     Dosage: 100 MILLIGRAM, QD
     Route: 048
     Dates: start: 2009
  17. DULCOLAX (BISACODYL) [Concomitant]
     Active Substance: BISACODYL
     Dosage: 1 SUPPOSITORY DAILY PRN
  18. MORPHINE [Concomitant]
     Active Substance: MORPHINE
     Dosage: 5-10 MG EVERY 2 HOURS PRN
  19. DENPAX [Suspect]
     Active Substance: FENTANYL
     Indication: PAIN
     Dosage: 25 MCG/HR
     Route: 062
     Dates: start: 2011
  20. METFORMIN [Concomitant]
     Active Substance: METFORMIN HYDROCHLORIDE
     Dosage: 1 DOSAGE FORM, BID
  21. PARACETAMOL [Concomitant]
     Active Substance: ACETAMINOPHEN
     Dosage: 20 MILLILITER FOUR TIMES A DAY PRN
  22. SIGMACORT                          /00028601/ [Concomitant]
     Dosage: APPLY THREE TIMES A DAY PRN
  23. TRIPRIM                            /00086101/ [Concomitant]
  24. URAL                               /00049401/ [Concomitant]
     Dosage: 1 SACHET THREE TIMES A DAY PRN

REACTIONS (8)
  - Pneumonia [Fatal]
  - Hypotension [Unknown]
  - Cognitive disorder [Unknown]
  - Dyspnoea [Unknown]
  - Aspiration [Unknown]
  - Pallor [Unknown]
  - Anaemia [Unknown]
  - Dysphagia [Unknown]

NARRATIVE: CASE EVENT DATE: 20181129
